FAERS Safety Report 12608613 (Version 1)
Quarter: 2016Q3

REPORT INFORMATION
  Report Type: Spontaneous
  Country: US (occurrence: US)
  Receive Date: 20160729
  Receipt Date: 20160729
  Transmission Date: 20161109
  Serious: Yes (Hospitalization)
  Sender: FDA-Public Use
  Company Number: US-PFIZER INC-2016367571

PATIENT
  Age: 39 Year
  Sex: Male

DRUGS (1)
  1. LYRICA [Suspect]
     Active Substance: PREGABALIN
     Dosage: 6000 MG, SINGLE (200 MG, 30 PILLS TAKEN AT ONCE)

REACTIONS (4)
  - Renal failure [Unknown]
  - Blood creatine phosphokinase increased [Unknown]
  - Intentional product misuse [Unknown]
  - Hepatic failure [Unknown]
